FAERS Safety Report 9055596 (Version 2)
Quarter: 2013Q1

REPORT INFORMATION
  Report Type: Spontaneous
  Country: BR (occurrence: BR)
  Receive Date: 20130206
  Receipt Date: 20130213
  Transmission Date: 20140127
  Serious: Yes (Other)
  Sender: FDA-Public Use
  Company Number: PHHY2013BR010783

PATIENT
  Sex: Male
  Weight: 75 kg

DRUGS (5)
  1. DIOVAN TRIPLE [Suspect]
     Indication: HYPERTENSION
     Dosage: 1 DF, (160 MG VALS/ 5 MG AMLO/ 12,5 MG HYDRO) DAILY
     Route: 048
     Dates: end: 201212
  2. DIOVAN TRIPLE [Suspect]
     Dosage: 1 DF, (160 MG VALS/ 10 MG AMLO/ 12,5 MG HYDRO) DAILY
     Route: 048
  3. LORAZEPAM [Suspect]
     Indication: SLEEP DISORDER
     Dosage: 1 DF, DAILY
     Route: 048
  4. CLOMIPRAMINE HYDROCHLORIDE [Suspect]
     Indication: DEPRESSION
     Dosage: 2 DF, DAILY
     Route: 048
  5. SIMVASTATIN [Suspect]
     Indication: COAGULOPATHY
     Dosage: 1 DF, DAILY
     Route: 048

REACTIONS (3)
  - Depression [Unknown]
  - Crying [Not Recovered/Not Resolved]
  - Hypertension [Not Recovered/Not Resolved]
